FAERS Safety Report 15802757 (Version 2)
Quarter: 2019Q1

REPORT INFORMATION
  Report Type: Spontaneous
  Country: FR (occurrence: FR)
  Receive Date: 20190109
  Receipt Date: 20190128
  Transmission Date: 20190417
  Serious: Yes (Other)
  Sender: FDA-Public Use
  Company Number: PHHY2019FR002228

PATIENT
  Age: 41 Year
  Sex: Female

DRUGS (7)
  1. TAMOXIFEN CITRATE. [Suspect]
     Active Substance: TAMOXIFEN CITRATE
     Indication: PRODUCT USED FOR UNKNOWN INDICATION
     Dosage: UNK
     Route: 065
  2. NOLVADEX D [Suspect]
     Active Substance: TAMOXIFEN CITRATE
     Indication: BREAST CANCER FEMALE
     Dosage: UNK
     Route: 065
  3. FLUOROURACIL. [Suspect]
     Active Substance: FLUOROURACIL
     Indication: PRODUCT USED FOR UNKNOWN INDICATION
     Dosage: 3 COURSES
     Route: 065
  4. EPIRUBICIN HYDROCHLORIDE. [Suspect]
     Active Substance: EPIRUBICIN HYDROCHLORIDE
     Indication: PRODUCT USED FOR UNKNOWN INDICATION
     Dosage: 3 COURSES
     Route: 065
  5. DOCETAXEL. [Suspect]
     Active Substance: DOCETAXEL
     Indication: BREAST CANCER FEMALE
     Dosage: UNK
     Route: 065
     Dates: start: 20111026, end: 20120215
  6. CYCLOPHOSPHAMIDE. [Suspect]
     Active Substance: CYCLOPHOSPHAMIDE
     Indication: PRODUCT USED FOR UNKNOWN INDICATION
     Dosage: 3 COURSES
     Route: 065
  7. TAXOTERE [Suspect]
     Active Substance: DOCETAXEL
     Indication: PRODUCT USED FOR UNKNOWN INDICATION
     Dosage: 3 COURSES
     Route: 065

REACTIONS (28)
  - Muscle spasms [Unknown]
  - Tinnitus [Unknown]
  - Depressive symptom [Unknown]
  - Pain in extremity [Unknown]
  - Arthralgia [Unknown]
  - Hallucination [Unknown]
  - Skin toxicity [Unknown]
  - Tetany [Unknown]
  - Hot flush [Unknown]
  - Mucosal toxicity [Unknown]
  - Pain [Unknown]
  - Cognitive disorder [Unknown]
  - Fatigue [Unknown]
  - Nausea [Unknown]
  - Dizziness [Unknown]
  - Neuropathy peripheral [Unknown]
  - Emotional disorder [Unknown]
  - Visual impairment [Unknown]
  - Facial pain [Unknown]
  - Gait disturbance [Unknown]
  - Dysstasia [Unknown]
  - Muscle contracture [Unknown]
  - Insomnia [Unknown]
  - Neuralgia [Unknown]
  - Visual acuity reduced [Unknown]
  - Sensory loss [Unknown]
  - Disturbance in attention [Unknown]
  - Weight increased [Unknown]

NARRATIVE: CASE EVENT DATE: 201205
